FAERS Safety Report 7475236-6 (Version None)
Quarter: 2011Q2

REPORT INFORMATION
  Report Type: 
  Country: None (occurrence: None)
  Receive Date: 20110505
  Receipt Date: 20110106
  Transmission Date: 20111010
  Serious: Yes (Hospitalization, Other)
  Sender: FDA-Public Use
  Company Number: GB-ACCORD-004841

PATIENT
  Age: 64 Year
  Sex: Female

DRUGS (8)
  1. OXALIPLATIN [Suspect]
     Indication: COLON CANCER METASTATIC
  2. G-CSF (G-CSF) [Concomitant]
  3. TRIMETHOPRIM + SULFAMETHOXAZOLE [Suspect]
     Indication: PNEUMONIA
     Dosage: ORAL
     Route: 048
  4. IRINOTECAN HCL [Suspect]
     Indication: COLON CANCER METASTATIC
  5. BEVACIZUMAB (BEVACIZUMAB) [Suspect]
     Indication: COLON CANCER METASTATIC
  6. FLUOROURACIL [Suspect]
     Indication: COLON CANCER METASTATIC
  7. PREDNISOLONE [Concomitant]
  8. LEUCOVORIN (LEUCOVORIN) [Concomitant]

REACTIONS (10)
  - LEUKOPENIA [None]
  - INTERSTITIAL LUNG DISEASE [None]
  - BLOOD BETA-D-GLUCAN INCREASED [None]
  - RED BLOOD CELL COUNT DECREASED [None]
  - PLATELET COUNT DECREASED [None]
  - ASPARTATE AMINOTRANSFERASE INCREASED [None]
  - NEOPLASM PROGRESSION [None]
  - HAEMOGLOBIN DECREASED [None]
  - PNEUMOCYSTIS JIROVECI PNEUMONIA [None]
  - BLOOD LACTATE DEHYDROGENASE INCREASED [None]
